FAERS Safety Report 7638207-2 (Version None)
Quarter: 2011Q3

REPORT INFORMATION
  Report Type: 
  Country: None (occurrence: None)
  Receive Date: 20110727
  Receipt Date: 20110713
  Transmission Date: 20111222
  Serious: Yes (Other)
  Sender: FDA-Public Use
  Company Number: JP-ASTRAZENECA-2011SE39130

PATIENT
  Age: 73 Year
  Sex: Male

DRUGS (23)
  1. MEROPENEM [Suspect]
     Route: 042
     Dates: start: 20101210, end: 20101210
  2. OMEPRAZOLE [Concomitant]
     Route: 048
     Dates: end: 20101212
  3. LAXOBERON [Concomitant]
     Route: 048
     Dates: start: 20101212, end: 20101212
  4. FRAGMIN [Concomitant]
     Dates: start: 20101213, end: 20101218
  5. CLIDAMACIN [Concomitant]
     Dates: start: 20101219
  6. NEUTROGIN [Concomitant]
     Dates: start: 20101210, end: 20101214
  7. NEUART [Concomitant]
     Route: 042
     Dates: start: 20101213, end: 20101215
  8. PANTOL [Concomitant]
     Dates: start: 20101218, end: 20101221
  9. UREPEARL [Concomitant]
  10. BISOLVON [Concomitant]
     Dates: start: 20101212
  11. NEOPHAGEN [Concomitant]
     Route: 042
     Dates: start: 20101215, end: 20101221
  12. PANVITAN [Concomitant]
     Route: 048
     Dates: end: 20101218
  13. APHTASOLON [Concomitant]
     Route: 061
     Dates: start: 20101212, end: 20101212
  14. FUROSEMIDE [Concomitant]
     Dates: start: 20101213
  15. MEROPENEM [Suspect]
     Route: 042
     Dates: start: 20101215, end: 20101221
  16. ADONA [Concomitant]
     Dates: end: 20101219
  17. OLOPATADINE HCL [Concomitant]
     Route: 048
  18. RIKAVARIN [Concomitant]
     Dates: end: 20101219
  19. MEROPENEM [Suspect]
     Indication: FEBRILE NEUTROPENIA
     Route: 042
     Dates: start: 20101211, end: 20101214
  20. LASIX [Concomitant]
     Route: 048
     Dates: end: 20101212
  21. PRIMPERAN TAB [Concomitant]
     Dates: end: 20101219
  22. MUCODYNE [Concomitant]
     Route: 048
     Dates: end: 20101212
  23. MAGMITT [Concomitant]
     Dates: start: 20101211, end: 20101212

REACTIONS (2)
  - PNEUMONIA ASPIRATION [None]
  - DISSEMINATED INTRAVASCULAR COAGULATION [None]
